FAERS Safety Report 18783576 (Version 1)
Quarter: 2021Q1

REPORT INFORMATION
  Report Type: Spontaneous
  Country: US (occurrence: US)
  Receive Date: 20210125
  Receipt Date: 20210125
  Transmission Date: 20210419
  Serious: Yes (Life-Threatening, Hospitalization, Other)
  Sender: FDA-Public Use
  Company Number: US-HIKMA PHARMACEUTICALS USA INC.-US-H14001-21-53423

PATIENT
  Age: 85 Year
  Sex: Male

DRUGS (4)
  1. LIDOCAINE. [Concomitant]
     Active Substance: LIDOCAINE
     Indication: ANAESTHESIA
     Dosage: UNKNOWN
     Route: 065
  2. PROPOFOL. [Suspect]
     Active Substance: PROPOFOL
     Indication: ANAESTHESIA
     Dosage: UNKNOWN
     Route: 065
  3. FENTANYL. [Concomitant]
     Active Substance: FENTANYL
     Indication: ANAESTHESIA
     Dosage: UNKNOWN
     Route: 065
  4. EPHEDRINE. [Suspect]
     Active Substance: EPHEDRINE
     Indication: ANAESTHESIA
     Dosage: UNKNOWN
     Route: 065

REACTIONS (3)
  - Cerebellar atrophy [Recovered/Resolved]
  - Cerebellar infarction [Recovered/Resolved]
  - Choreoathetosis [Recovered/Resolved]
